FAERS Safety Report 4946840-1 (Version None)
Quarter: 2006Q1

REPORT INFORMATION
  Report Type: 
  Country: None (occurrence: None)
  Receive Date: 20060317
  Receipt Date: 20060208
  Transmission Date: 20060701
  Serious: Yes (Hospitalization, Disabling)
  Sender: FDA-Public Use
  Company Number: US-MERCK-0602USA02273

PATIENT
  Age: 58 Year
  Sex: Female
  Weight: 83 kg

DRUGS (7)
  1. VIOXX [Suspect]
     Indication: RHEUMATOID ARTHRITIS
     Route: 048
     Dates: start: 20000101, end: 20040101
  2. ZOCOR [Concomitant]
     Route: 065
  3. REMICADE [Concomitant]
     Route: 065
  4. ESTROGENS (UNSPECIFIED) [Concomitant]
     Route: 065
  5. ASPIRIN [Concomitant]
     Route: 065
  6. PREDNISONE [Concomitant]
     Route: 065
  7. METHOTREXATE [Concomitant]
     Route: 065

REACTIONS (4)
  - ATRIOVENTRICULAR BLOCK COMPLETE [None]
  - BACK DISORDER [None]
  - CHEST PAIN [None]
  - MYOCARDIAL INFARCTION [None]
